FAERS Safety Report 6812814-9 (Version None)
Quarter: 2010Q3

REPORT INFORMATION
  Report Type: 
  Country: None (occurrence: None)
  Receive Date: 20100701
  Receipt Date: 20100622
  Transmission Date: 20110219
  Serious: Yes (Hospitalization)
  Sender: FDA-Public Use
  Company Number: B0663175A

PATIENT
  Age: 80 Year
  Sex: Female

DRUGS (2)
  1. VALTREX [Suspect]
     Indication: HERPES ZOSTER
     Dosage: 3U PER DAY
     Route: 048
     Dates: start: 20091104, end: 20091114
  2. COZAAR [Suspect]
     Route: 048
     Dates: start: 20091010, end: 20091110

REACTIONS (4)
  - DEHYDRATION [None]
  - DIARRHOEA [None]
  - HYPERTONIA [None]
  - RENAL FAILURE ACUTE [None]
